FAERS Safety Report 16148450 (Version 2)
Quarter: 2019Q4

REPORT INFORMATION
  Report Type: Spontaneous
  Country: US (occurrence: US)
  Receive Date: 20190402
  Receipt Date: 20191118
  Transmission Date: 20200122
  Serious: Yes (Hospitalization)
  Sender: FDA-Public Use
  Company Number: US-JNJFOC-20190400305

PATIENT
  Age: 38 Year
  Sex: Female
  Weight: 53.3 kg

DRUGS (7)
  1. XARELTO [Suspect]
     Active Substance: RIVAROXABAN
     Indication: ATRIAL FIBRILLATION
     Route: 048
     Dates: start: 20160327, end: 20160414
  2. HYDROCODONE [Concomitant]
     Active Substance: HYDROCODONE
     Dates: start: 20160902, end: 20170711
  3. METHOCARBAMOL. [Concomitant]
     Active Substance: METHOCARBAMOL
     Dates: start: 20170302
  4. XARELTO [Suspect]
     Active Substance: RIVAROXABAN
     Indication: THROMBOSIS PROPHYLAXIS
  5. XARELTO [Suspect]
     Active Substance: RIVAROXABAN
     Indication: THROMBOSIS PROPHYLAXIS
     Route: 048
     Dates: start: 2017, end: 20170824
  6. XARELTO [Suspect]
     Active Substance: RIVAROXABAN
     Indication: THROMBOSIS PROPHYLAXIS
  7. XARELTO [Suspect]
     Active Substance: RIVAROXABAN
     Indication: CEREBROVASCULAR ACCIDENT PROPHYLAXIS
     Route: 048
     Dates: start: 20160414, end: 20170530

REACTIONS (1)
  - Uterine haemorrhage [Recovering/Resolving]

NARRATIVE: CASE EVENT DATE: 20170331
